FAERS Safety Report 5004675-8 (Version None)
Quarter: 2006Q2

REPORT INFORMATION
  Report Type: 
  Country: None (occurrence: None)
  Receive Date: 20060517
  Receipt Date: 20060510
  Transmission Date: 20061013
  Serious: Yes (Other)
  Sender: FDA-Public Use
  Company Number: GB-ABBOTT-06P-167-0332906-00

PATIENT
  Age: 41 Year
  Sex: Female

DRUGS (3)
  1. VALPROATE SODIUM [Suspect]
     Indication: DRUG USE FOR UNKNOWN INDICATION
     Route: 065
  2. CLOZAPINE [Interacting]
     Indication: SCHIZOPHRENIA
     Route: 048
     Dates: start: 20050415
  3. CLOZAPINE [Interacting]
     Dosage: ABOVE 250 MG

REACTIONS (3)
  - BLOOD PRESSURE DIASTOLIC INCREASED [None]
  - DRUG INTERACTION [None]
  - SEDATION [None]
